FAERS Safety Report 5692957-6 (Version None)
Quarter: 2008Q2

REPORT INFORMATION
  Report Type: 
  Country: None (occurrence: None)
  Receive Date: 20080403
  Receipt Date: 20080326
  Transmission Date: 20081010
  Serious: Yes (Hospitalization)
  Sender: FDA-Public Use
  Company Number: US-JNJFOC-20080201426

PATIENT
  Sex: Female
  Weight: 76.2 kg

DRUGS (8)
  1. DURAGESIC-100 [Suspect]
     Route: 062
  2. DURAGESIC-100 [Suspect]
     Indication: SPINAL DISORDER
     Route: 062
  3. FENTANYL TRANSDERMAL SYSTEM [Suspect]
     Indication: SPINAL DISORDER
     Route: 062
  4. PROZAC [Concomitant]
     Indication: DEPRESSION
     Route: 048
  5. CLONAZEPAM [Concomitant]
     Indication: DEPRESSION
     Route: 048
  6. VICODIN ES [Concomitant]
     Indication: SPINAL DISORDER
     Route: 048
  7. LYRICA [Concomitant]
     Indication: PAIN
     Route: 048
  8. LEVOTHYROXINE SODIUM [Concomitant]
     Route: 048

REACTIONS (4)
  - APPLICATION SITE RASH [None]
  - SPINAL DISORDER [None]
  - SPINAL OPERATION [None]
  - WRONG TECHNIQUE IN DRUG USAGE PROCESS [None]
